FAERS Safety Report 12214718 (Version 2)
Quarter: 2016Q2

REPORT INFORMATION
  Report Type: Report from Study
  Country: JP (occurrence: JP)
  Receive Date: 20160328
  Receipt Date: 20160517
  Transmission Date: 20160815
  Serious: Yes (Hospitalization)
  Sender: FDA-Public Use
  Company Number: JP-AMGEN-JPNCT2016038788

PATIENT
  Age: 63 Year
  Sex: Male
  Weight: 77 kg

DRUGS (25)
  1. OLOPATADINE HYDROCHLORIDE. [Concomitant]
     Active Substance: OLOPATADINE HYDROCHLORIDE
     Dosage: 1 DF, QD
     Route: 048
  2. SLOW-K [Concomitant]
     Active Substance: POTASSIUM CHLORIDE
     Dosage: 1 DF, BID
     Route: 048
  3. TRICHLORMETHIAZIDE [Concomitant]
     Active Substance: TRICHLORMETHIAZIDE
     Dosage: 1 DF, QD
     Route: 048
  4. TRAMAL [Concomitant]
     Active Substance: TRAMADOL
     Dosage: 25 MG, BID
     Route: 048
  5. LAC-B [Concomitant]
     Active Substance: BIFIDOBACTERIUM SPP.
     Dosage: 1 G, TID
     Route: 048
  6. MAGMITT [Concomitant]
     Active Substance: MAGNESIUM OXIDE
     Dosage: 250 MG, TID
     Route: 048
  7. BAYASPIRIN [Concomitant]
     Active Substance: ASPIRIN
     Dosage: 1 DF, QD
     Route: 048
  8. DARBEPOETIN ALFA [Suspect]
     Active Substance: DARBEPOETIN ALFA
     Dosage: 30 MUG, Q2WK
     Route: 058
     Dates: start: 20150916
  9. EQUA [Concomitant]
     Active Substance: VILDAGLIPTIN
     Dosage: 50 MG, BID
     Route: 048
  10. EBRANTIL [Concomitant]
     Active Substance: URAPIDIL
     Dosage: 15 MG, BID
     Route: 048
  11. ATORVASTATIN [Concomitant]
     Active Substance: ATORVASTATIN
     Dosage: 10 MG, QD
     Route: 048
  12. CALONAL [Concomitant]
     Active Substance: ACETAMINOPHEN
     Dosage: UNK
     Route: 048
     Dates: start: 20160307
  13. DARBEPOETIN ALFA [Suspect]
     Active Substance: DARBEPOETIN ALFA
     Indication: PRODUCT USED FOR UNKNOWN INDICATION
     Dosage: 30 MUG, QD
     Route: 058
     Dates: start: 20150722
  14. DARBEPOETIN ALFA [Suspect]
     Active Substance: DARBEPOETIN ALFA
     Dosage: 30 MUG, QD
     Route: 058
     Dates: start: 20150819
  15. FUROSEMIDE. [Concomitant]
     Active Substance: FUROSEMIDE
     Dosage: 80 MG, QD
     Route: 048
  16. ARTIST [Concomitant]
     Active Substance: CARVEDILOL
     Dosage: 2.5 MG, BID
     Route: 048
  17. SARPOGRELATE HYDROCHLORIDE [Concomitant]
     Active Substance: SARPOGRELATE
     Dosage: 100 MG, TID
     Route: 048
  18. DARBEPOETIN ALFA [Suspect]
     Active Substance: DARBEPOETIN ALFA
     Dosage: 30 MUG, Q4WK
     Route: 058
     Dates: start: 20151209
  19. DARBEPOETIN ALFA [Suspect]
     Active Substance: DARBEPOETIN ALFA
     Dosage: 30 MUG, QD
     Route: 058
     Dates: start: 20160316
  20. ATELEC [Concomitant]
     Active Substance: CILNIDIPINE
     Dosage: 1 DF, QD
     Route: 048
  21. LYRICA [Concomitant]
     Active Substance: PREGABALIN
     Dosage: UNK, BID
     Route: 048
  22. EPINASTINE HYDROCHLORIDE. [Concomitant]
     Active Substance: EPINASTINE HYDROCHLORIDE
     Dosage: 20 MG, QD
     Route: 048
  23. RABEPRAZOLE NA [Concomitant]
     Active Substance: RABEPRAZOLE SODIUM
     Dosage: 10 MG, QD
     Route: 048
  24. CILOSTAZOL. [Concomitant]
     Active Substance: CILOSTAZOL
     Dosage: 1 DF, BID
     Route: 048
  25. FRANDOL [Concomitant]
     Active Substance: ISOSORBIDE DINITRATE
     Dosage: 40 MG, QD
     Route: 062

REACTIONS (5)
  - Bronchitis [Recovering/Resolving]
  - Weight increased [Recovering/Resolving]
  - Oedema [Recovering/Resolving]
  - Tonsillitis [Recovered/Resolved]
  - Chronic kidney disease [Recovering/Resolving]

NARRATIVE: CASE EVENT DATE: 20151002
